FAERS Safety Report 4658825-3 (Version None)
Quarter: 2005Q2

REPORT INFORMATION
  Report Type: 
  Country: None (occurrence: None)
  Receive Date: 20050509
  Receipt Date: 20050425
  Transmission Date: 20051028
  Serious: Yes (Hospitalization)
  Sender: FDA-Public Use
  Company Number: 2005067852

PATIENT
  Sex: Female

DRUGS (1)
  1. GABAPENTIN [Suspect]
     Indication: NEUROPATHIC PAIN
     Dosage: 900 MG (900 MG, 1 IN 1 D), ORAL
     Route: 048

REACTIONS (2)
  - BLOOD CREATININE INCREASED [None]
  - MYOCLONUS [None]
